FAERS Safety Report 20462593 (Version 3)
Quarter: 2022Q2

REPORT INFORMATION
  Report Type: Spontaneous
  Country: US (occurrence: None)
  Receive Date: 20220211
  Receipt Date: 20220422
  Transmission Date: 20220721
  Serious: Yes (Other)
  Sender: FDA-Public Use
  Company Number: 2022A061496

PATIENT
  Age: 29464 Day
  Sex: Female
  Weight: 81.6 kg

DRUGS (1)
  1. BYETTA [Suspect]
     Active Substance: EXENATIDE
     Indication: Diabetes mellitus
     Route: 065

REACTIONS (7)
  - Femur fracture [Unknown]
  - Fall [Unknown]
  - Gait disturbance [Unknown]
  - Peripheral swelling [Unknown]
  - Stress [Unknown]
  - Device difficult to use [Unknown]
  - Device malfunction [Unknown]

NARRATIVE: CASE EVENT DATE: 20220203
